FAERS Safety Report 15748954 (Version 1)
Quarter: 2018Q4

REPORT INFORMATION
  Report Type: Spontaneous
  Country: US (occurrence: US)
  Receive Date: 20181221
  Receipt Date: 20181221
  Transmission Date: 20190205
  Serious: No
  Sender: FDA-Public Use
  Company Number: US-RECKITT BENCKISER HEALTHCARE INT LIMITED-RB-99328-2017

PATIENT
  Age: 71 Year
  Sex: Male

DRUGS (1)
  1. DELSYM [Suspect]
     Active Substance: DEXTROMETHORPHAN
     Indication: COUGH
     Dosage: UNK, 5 DOSES, (ONCE EVERY 4 HOURS)
     Route: 065
     Dates: start: 20171205, end: 20171208

REACTIONS (1)
  - Drug ineffective [Not Recovered/Not Resolved]
